FAERS Safety Report 5320703-4 (Version None)
Quarter: 2007Q2

REPORT INFORMATION
  Report Type: 
  Country: None (occurrence: None)
  Receive Date: 20070502
  Receipt Date: 20070402
  Transmission Date: 20071010
  Serious: Yes (Hospitalization)
  Sender: FDA-Public Use
  Company Number: 20073752

PATIENT
  Age: 14 Year

DRUGS (1)
  1. LIORESAL [Suspect]
     Indication: MUSCLE SPASTICITY
     Dosage: 385 MCG, DAILY, INTRATHECAL
     Route: 037

REACTIONS (4)
  - HEADACHE [None]
  - INTRACRANIAL HYPOTENSION [None]
  - SCOLIOSIS [None]
  - VOMITING [None]
